FAERS Safety Report 24235706 (Version 2)
Quarter: 2024Q3

REPORT INFORMATION
  Report Type: Spontaneous
  Country: CN (occurrence: CN)
  Receive Date: 20240822
  Receipt Date: 20240827
  Transmission Date: 20241017
  Serious: Yes (Other)
  Sender: SANOFI AVENTIS
  Company Number: CN-SA-SAC20240817001030

PATIENT
  Age: 27 Year
  Sex: Female
  Weight: 67 kg

DRUGS (2)
  1. ENOXAPARIN SODIUM [Suspect]
     Active Substance: ENOXAPARIN SODIUM
     Indication: Hypercoagulation
     Dosage: 0.4 ML, QD
     Route: 058
     Dates: start: 20240801, end: 20240801
  2. PROGESTERONE [Suspect]
     Active Substance: PROGESTERONE
     Indication: Tocolysis
     Dosage: 40 MG, QD, START TIME:  13:58
     Route: 030
     Dates: start: 20240801, end: 20240801

REACTIONS (6)
  - Unresponsive to stimuli [Recovering/Resolving]
  - Muscular weakness [Recovering/Resolving]
  - Pallor [Recovering/Resolving]
  - Muscle twitching [Recovering/Resolving]
  - Fear of injection [Unknown]
  - Maternal exposure during pregnancy [Unknown]

NARRATIVE: CASE EVENT DATE: 20240801
